FAERS Safety Report 16456273 (Version 2)
Quarter: 2019Q3

REPORT INFORMATION
  Report Type: Spontaneous
  Country: SE (occurrence: SE)
  Receive Date: 20190620
  Receipt Date: 20190711
  Transmission Date: 20191004
  Serious: Yes (Death, Hospitalization)
  Sender: FDA-Public Use
  Company Number: PHHY2019SE142071

PATIENT
  Age: 90 Year
  Sex: Female

DRUGS (1)
  1. ENTRESTO [Suspect]
     Active Substance: SACUBITRIL\VALSARTAN
     Indication: CARDIAC FAILURE
     Dosage: 100 MG (49/51), QD
     Route: 065
     Dates: start: 20190307

REACTIONS (3)
  - Fall [Unknown]
  - Urosepsis [Fatal]
  - Death [Fatal]

NARRATIVE: CASE EVENT DATE: 20190425
